FAERS Safety Report 7841995-3 (Version None)
Quarter: 2011Q4

REPORT INFORMATION
  Report Type: 
  Country: None (occurrence: None)
  Receive Date: 20111025
  Receipt Date: 20111017
  Transmission Date: 20120403
  Serious: Yes (Other)
  Sender: FDA-Public Use
  Company Number: FR-GENZYME-CLOF-1001861

PATIENT
  Age: 62 Year
  Sex: Female

DRUGS (1)
  1. EVOLTRA [Suspect]
     Indication: ACUTE LYMPHOCYTIC LEUKAEMIA
     Dosage: 30 MG/M2, QD
     Route: 065

REACTIONS (1)
  - GRAFT VERSUS HOST DISEASE [None]
